FAERS Safety Report 19407520 (Version 1)
Quarter: 2021Q2

REPORT INFORMATION
  Report Type: Spontaneous
  Country: NL (occurrence: NL)
  Receive Date: 20210611
  Receipt Date: 20210611
  Transmission Date: 20210717
  Serious: Yes (Other)
  Sender: FDA-Public Use
  Company Number: NL-TEVA-2021-NL-1920725

PATIENT
  Sex: Male
  Weight: 44 kg

DRUGS (4)
  1. BECLOMET/FORMOT/GLYCOPYR AEROSOL 87/5/9UG/DO / TRIMBOW AEROSOL 87/5/9M [Concomitant]
     Dosage: AEROSOL, 87/5/9 UG/DOSE (MICROGRAMS PER DOSE) , THERAPY START DATE AND END DATE : ASKU
  2. GENVOYA [Suspect]
     Active Substance: COBICISTAT\ELVITEGRAVIR\EMTRICITABINE\TENOFOVIR ALAFENAMIDE FUMARATE
     Indication: HIV INFECTION
     Dosage: 150 MILLIGRAM DAILY; 1 X PER DAY BOTH TABLETS 150 MG , THERAPY END DATE : ASKU
     Dates: start: 2016
  3. DARUNAVIR TABLET 800MG / BRAND NAME NOT SPECIFIED [Suspect]
     Active Substance: DARUNAVIR
     Indication: HIV INFECTION
     Dosage: 800 MILLIGRAM DAILY; 1 X PER DAY BOTH TABLETS 800 MG , THERAPY END DATE : ASKU
     Dates: start: 2016
  4. SALBUTAMOL AEROSOL 100UG/DO / BRAND NAME NOT SPECIFIED [Concomitant]
     Active Substance: ALBUTEROL
     Dosage: AEROSOL,100 UG/DOSE (MICROGRAMS PER DOSE) , THERAPY START DATE AND END DATE : ASKU

REACTIONS (2)
  - Neuropathy peripheral [Not Recovered/Not Resolved]
  - Muscle spasms [Not Recovered/Not Resolved]
